FAERS Safety Report 12588942 (Version 1)
Quarter: 2016Q3

REPORT INFORMATION
  Report Type: Spontaneous
  Country: US (occurrence: US)
  Receive Date: 20160725
  Receipt Date: 20160725
  Transmission Date: 20161109
  Serious: No
  Sender: FDA-Public Use
  Company Number: US-JNJFOC-20160609964

PATIENT
  Age: 23 Year
  Sex: Female
  Weight: 43.55 kg

DRUGS (2)
  1. ZYRTEC [Suspect]
     Active Substance: CETIRIZINE HYDROCHLORIDE
     Indication: PRURITUS
     Route: 048
     Dates: start: 20160601
  2. ZYRTEC [Suspect]
     Active Substance: CETIRIZINE HYDROCHLORIDE
     Indication: ARTHROPOD BITE
     Route: 048
     Dates: start: 20160601

REACTIONS (5)
  - Palpitations [Unknown]
  - Product use issue [Recovering/Resolving]
  - Migraine [Recovering/Resolving]
  - Off label use [Recovering/Resolving]
  - Visual impairment [Recovering/Resolving]

NARRATIVE: CASE EVENT DATE: 20160602
